FAERS Safety Report 4602233-8 (Version None)
Quarter: 2005Q2

REPORT INFORMATION
  Report Type: 
  Country: None (occurrence: None)
  Receive Date: 20050201
  Receipt Date: 20040831
  Transmission Date: 20051028
  Serious: Yes (Other)
  Sender: FDA-Public Use
  Company Number: 200420426BWH

PATIENT
  Age: 64 Year
  Sex: Male

DRUGS (7)
  1. AVELOX [Suspect]
     Indication: SINUSITIS
     Dosage: 400 MG, TOTAL DAILY, ORAL
     Route: 048
     Dates: start: 20040720, end: 20040918
  2. ZOCOR [Suspect]
     Dosage: SEE IMAGE
     Route: 048
     Dates: start: 19970101, end: 20030501
  3. ZOCOR [Suspect]
     Dosage: SEE IMAGE
     Route: 048
     Dates: start: 20030501, end: 20040615
  4. ZOCOR [Suspect]
     Dosage: SEE IMAGE
     Route: 048
     Dates: start: 20040615, end: 20040825
  5. . [Concomitant]
  6. , [Concomitant]
  7. ZETIA [Concomitant]

REACTIONS (4)
  - ALANINE AMINOTRANSFERASE INCREASED [None]
  - ASPARTATE AMINOTRANSFERASE INCREASED [None]
  - BLOOD ALKALINE PHOSPHATASE INCREASED [None]
  - LIVER FUNCTION TEST ABNORMAL [None]
